FAERS Safety Report 13388480 (Version 1)
Quarter: 2017Q1

REPORT INFORMATION
  Report Type: Spontaneous
  Country: US (occurrence: US)
  Receive Date: 20170330
  Receipt Date: 20170330
  Transmission Date: 20170429
  Serious: No
  Sender: FDA-Public Use
  Company Number: US-SHIRE-US201707026

PATIENT
  Sex: Female

DRUGS (3)
  1. XANAX [Concomitant]
     Active Substance: ALPRAZOLAM
     Indication: ANXIETY
     Dosage: UNK, UNKNOWN AT BEDTIME
  2. CLARITIN EYE [Concomitant]
     Indication: EYE PRURITUS
     Dosage: UNK, AS REQ^D
     Route: 047
  3. XIIDRA [Suspect]
     Active Substance: LIFITEGRAST
     Indication: DRY EYE
     Dosage: 2 GTT (IN EACH EYE), 2X/DAY:BID
     Route: 047
     Dates: start: 201701

REACTIONS (5)
  - Incorrect dosage administered [Unknown]
  - Instillation site pain [Unknown]
  - Incorrect product storage [Unknown]
  - Drug dose omission [Unknown]
  - Overdose [Unknown]

NARRATIVE: CASE EVENT DATE: 2017
